FAERS Safety Report 13838103 (Version 1)
Quarter: 2017Q3

REPORT INFORMATION
  Report Type: Report from Study
  Country: None (occurrence: AU)
  Receive Date: 20170807
  Receipt Date: 20170807
  Transmission Date: 20171127
  Serious: Yes (Hospitalization, Other)
  Sender: FDA-Public Use
  Company Number: AU-ABBVIE-17P-008-2057104-00

PATIENT
  Sex: Male

DRUGS (2)
  1. DUODOPA [Suspect]
     Active Substance: CARBIDOPA\LEVODOPA
     Indication: PARKINSON^S DISEASE
     Dosage: 3.4ML/HR, 16HRS INFUSION DECRESED
     Route: 050
     Dates: start: 20170620, end: 2017
  2. DUODOPA [Suspect]
     Active Substance: CARBIDOPA\LEVODOPA
     Dosage: 3.2ML/HR, 16HRS INFUSION
     Route: 050
     Dates: start: 20170724

REACTIONS (7)
  - Upper limb fracture [Unknown]
  - Dyskinesia [Recovered/Resolved]
  - Fall [Unknown]
  - Contusion [Unknown]
  - Rib fracture [Unknown]
  - Injury [Unknown]
  - Gait disturbance [Unknown]

NARRATIVE: CASE EVENT DATE: 2017
